FAERS Safety Report 13420549 (Version 2)
Quarter: 2017Q2

REPORT INFORMATION
  Report Type: Report from Study
  Country: US (occurrence: US)
  Receive Date: 20170408
  Receipt Date: 20170608
  Transmission Date: 20170830
  Serious: Yes (Hospitalization)
  Sender: FDA-Public Use
  Company Number: US-AMGEN-USASP2017051113

PATIENT
  Age: 89 Year
  Sex: Female

DRUGS (2)
  1. PROLIA [Suspect]
     Active Substance: DENOSUMAB
     Indication: OSTEOPOROSIS
     Dosage: UNK
     Route: 065
     Dates: start: 20161227, end: 20161227
  2. PROLIA [Suspect]
     Active Substance: DENOSUMAB
     Indication: OSTEOPOROSIS POSTMENOPAUSAL

REACTIONS (10)
  - Fall [Recovering/Resolving]
  - Contusion [Unknown]
  - Rib fracture [Unknown]
  - Limb injury [Unknown]
  - Feeling abnormal [Unknown]
  - Hypotension [Unknown]
  - Ligament sprain [Unknown]
  - Blood pressure fluctuation [Unknown]
  - Hypertension [Unknown]
  - Asthenia [Unknown]

NARRATIVE: CASE EVENT DATE: 201612
